FAERS Safety Report 7169818-9 (Version None)
Quarter: 2010Q4

REPORT INFORMATION
  Report Type: 
  Country: None (occurrence: None)
  Receive Date: 20101206
  Receipt Date: 20101122
  Transmission Date: 20110411
  Serious: Yes (Other)
  Sender: FDA-Public Use
  Company Number: JP-ACCORD-007012

PATIENT
  Age: 71 Year
  Sex: Male

DRUGS (4)
  1. CARBOPLATIN [Suspect]
     Indication: METASTATIC GASTRIC CANCER
  2. ETOPOSIDE [Suspect]
     Indication: METASTATIC GASTRIC CANCER
  3. FLUOROURACIL [Suspect]
     Indication: METASTATIC GASTRIC CANCER
  4. EPIRUBICIN HYDROCHLORIDE [Suspect]
     Indication: METASTATIC GASTRIC CANCER

REACTIONS (4)
  - AGRANULOCYTOSIS [None]
  - LEUKOPENIA [None]
  - METASTASES TO LIVER [None]
  - THROMBOCYTOPENIA [None]
